FAERS Safety Report 10270257 (Version 1)
Quarter: 2014Q2

REPORT INFORMATION
  Report Type: Spontaneous
  Country: US (occurrence: None)
  Receive Date: 20140627
  Receipt Date: 20140627
  Transmission Date: 20141212
  Serious: Yes (Other)
  Sender: FDA-Public Use
  Company Number: None

PATIENT
  Sex: Female

DRUGS (5)
  1. SOVALDI 400MG GILEAD SCIENCES [Suspect]
     Indication: HEPATITIS C
     Route: 048
     Dates: start: 20140522
  2. CYMBALTA [Concomitant]
  3. SEROQUEL [Concomitant]
  4. OLYSIO [Concomitant]
  5. RIBAVIRIN [Concomitant]

REACTIONS (1)
  - Anaemia [None]
